FAERS Safety Report 7411747-7 (Version None)
Quarter: 2011Q2

REPORT INFORMATION
  Report Type: 
  Country: None (occurrence: None)
  Receive Date: 20110408
  Receipt Date: 20110408
  Transmission Date: 20111010
  Serious: Yes (Hospitalization)
  Sender: FDA-Public Use
  Company Number: None

PATIENT
  Age: 59 Year
  Sex: Female
  Weight: 56.246 kg

DRUGS (7)
  1. CLEOCIN T [Concomitant]
  2. COMPAZINE [Concomitant]
  3. HYDROCODONE BITARTRATE [Concomitant]
  4. ZOFRAN [Concomitant]
  5. METOPROLOL TARTRATE [Concomitant]
  6. HYDROXYCHLOROQUINE [Suspect]
     Indication: NON-SMALL CELL LUNG CANCER
     Dosage: 1000 MG QD
     Dates: start: 20110223, end: 20110330
  7. ERLOTINIB [Suspect]
     Indication: NON-SMALL CELL LUNG CANCER
     Dosage: 150 MG QD
     Dates: start: 20110223, end: 20110407

REACTIONS (6)
  - NEOPLASM MALIGNANT [None]
  - NAUSEA [None]
  - BLOOD BILIRUBIN INCREASED [None]
  - INFECTION [None]
  - FATIGUE [None]
  - NON-SMALL CELL LUNG CANCER STAGE IV [None]
